FAERS Safety Report 6555773-9 (Version None)
Quarter: 2010Q1

REPORT INFORMATION
  Report Type: 
  Country: None (occurrence: None)
  Receive Date: 20100128
  Receipt Date: 20100118
  Transmission Date: 20100710
  Serious: Yes (Hospitalization)
  Sender: FDA-Public Use
  Company Number: DE-ABBOTT-09P-062-0581848-00

PATIENT
  Sex: Female

DRUGS (7)
  1. HUMIRA [Suspect]
     Indication: CROHN'S DISEASE
     Route: 058
     Dates: start: 20070701, end: 20090521
  2. HUMIRA [Suspect]
     Dates: start: 20090618
  3. HUMIRA [Suspect]
     Dates: start: 20091103
  4. CLAVASAL [Concomitant]
     Indication: CROHN'S DISEASE
  5. PENTASA [Concomitant]
     Indication: CROHN'S DISEASE
  6. CA++ [Concomitant]
     Indication: DRUG USE FOR UNKNOWN INDICATION
  7. SALOFALK [Concomitant]
     Indication: CROHN'S DISEASE
     Route: 054

REACTIONS (2)
  - COLOSTOMY [None]
  - COLOSTOMY CLOSURE [None]
